FAERS Safety Report 10711386 (Version 1)
Quarter: 2015Q1

REPORT INFORMATION
  Report Type: Spontaneous
  Country: IT (occurrence: IT)
  Receive Date: 20150114
  Receipt Date: 20150114
  Transmission Date: 20150721
  Serious: Yes (Hospitalization)
  Sender: FDA-Public Use
  Company Number: IT-BAYER-2015-004711

PATIENT
  Age: 44 Year
  Sex: Male

DRUGS (3)
  1. LOPRESSOR [Concomitant]
     Active Substance: METOPROLOL TARTRATE
  2. CIPROXIN 500 MG FILM-COATED TABLETS [Suspect]
     Active Substance: CIPROFLOXACIN
     Dosage: DAILY DOSE 1000 MG
     Route: 048
     Dates: start: 20141225, end: 20141231
  3. XANAX [Concomitant]
     Active Substance: ALPRAZOLAM

REACTIONS (2)
  - Bronchopneumonia [Recovering/Resolving]
  - Drug ineffective [Recovering/Resolving]

NARRATIVE: CASE EVENT DATE: 20141231
